FAERS Safety Report 6416401-6 (Version None)
Quarter: 2009Q4

REPORT INFORMATION
  Report Type: 
  Country: None (occurrence: None)
  Receive Date: 20091023
  Receipt Date: 20091012
  Transmission Date: 20100525
  Serious: Yes (Hospitalization)
  Sender: FDA-Public Use
  Company Number: TIF2009A00085

PATIENT
  Sex: Male

DRUGS (2)
  1. LANSOPRAZOLE [Suspect]
     Dosage: 15 MG
  2. LIPONORM        (SIMVASTATIN) [Concomitant]

REACTIONS (2)
  - BLOOD CREATINE PHOSPHOKINASE INCREASED [None]
  - VIRAL INFECTION [None]
